FAERS Safety Report 23189160 (Version 1)
Quarter: 2023Q4

REPORT INFORMATION
  Report Type: Report from Study
  Country: US (occurrence: US)
  Receive Date: 20231115
  Receipt Date: 20231115
  Transmission Date: 20240110
  Serious: Yes (Other)
  Sender: FDA-Public Use
  Company Number: US-ABBVIE-5495082

PATIENT
  Sex: Female

DRUGS (2)
  1. HUMIRA [Suspect]
     Active Substance: ADALIMUMAB
     Indication: Rheumatoid arthritis
     Dosage: LAST ADMIN DATE: 2023
     Route: 058
     Dates: start: 202303
  2. HUMIRA [Suspect]
     Active Substance: ADALIMUMAB
     Dosage: LAST ADMIN DATE: 2023 , FIRST ADMIN DATE : 2023
     Route: 058

REACTIONS (3)
  - Carpal tunnel syndrome [Recovered/Resolved]
  - Carpal tunnel syndrome [Unknown]
  - Impetigo [Unknown]

NARRATIVE: CASE EVENT DATE: 20230101
